FAERS Safety Report 23541813 (Version 2)
Quarter: 2024Q2

REPORT INFORMATION
  Report Type: Report from Study
  Country: US (occurrence: US)
  Receive Date: 20240220
  Receipt Date: 20240403
  Transmission Date: 20240716
  Serious: Yes (Other)
  Sender: FDA-Public Use
  Company Number: US-Merck Healthcare KGaA-9258102

PATIENT
  Age: 68 Year
  Sex: Female

DRUGS (9)
  1. REBIF [Suspect]
     Active Substance: INTERFERON BETA-1A
     Indication: Multiple sclerosis
     Route: 058
     Dates: start: 20100419
  2. REBIF [Suspect]
     Active Substance: INTERFERON BETA-1A
     Route: 058
     Dates: start: 201201, end: 20120419
  3. REBIF [Suspect]
     Active Substance: INTERFERON BETA-1A
     Route: 058
     Dates: start: 20130812
  4. REBIF [Suspect]
     Active Substance: INTERFERON BETA-1A
     Route: 058
     Dates: end: 20180227
  5. REBIF [Suspect]
     Active Substance: INTERFERON BETA-1A
     Route: 058
     Dates: start: 20180817, end: 20181218
  6. REBIF [Suspect]
     Active Substance: INTERFERON BETA-1A
     Route: 058
     Dates: start: 20190522
  7. VESICARE [Suspect]
     Active Substance: SOLIFENACIN SUCCINATE
     Indication: Urinary incontinence
     Dates: start: 20210726
  8. GEMTESA [Concomitant]
     Active Substance: VIBEGRON
     Indication: Product used for unknown indication
  9. LOSARTAN [Concomitant]
     Active Substance: LOSARTAN
     Indication: Product used for unknown indication

REACTIONS (22)
  - Bladder cancer [Unknown]
  - Metastases to kidney [Unknown]
  - Neuropathy peripheral [Unknown]
  - Transurethral prostatectomy [Unknown]
  - Drug intolerance [Unknown]
  - Nephropathy [Unknown]
  - Contusion [Unknown]
  - Abdominal pain [Unknown]
  - Renal pain [Unknown]
  - Peripheral swelling [Unknown]
  - Myalgia [Unknown]
  - Urinary retention [Unknown]
  - Hypertonic bladder [Not Recovered/Not Resolved]
  - Feeling abnormal [Recovering/Resolving]
  - Dry mouth [Unknown]
  - Urinary incontinence [Unknown]
  - Multiple sclerosis [Unknown]
  - General physical health deterioration [Unknown]
  - Pain [Unknown]
  - Multiple sclerosis relapse [Unknown]
  - Illness [Unknown]
  - Malaise [Unknown]

NARRATIVE: CASE EVENT DATE: 20160101
